FAERS Safety Report 9496828 (Version 1)
Quarter: 2013Q3

REPORT INFORMATION
  Report Type: Spontaneous
  Country: US (occurrence: None)
  Receive Date: 20130903
  Receipt Date: 20130903
  Transmission Date: 20140515
  Serious: No
  Sender: FDA-Public Use
  Company Number: None

PATIENT
  Age: 5 Year
  Sex: Male
  Weight: 21.32 kg

DRUGS (2)
  1. MONTELUKAST SODIUM [Suspect]
     Indication: WHEEZING
     Dosage: 1 PILL ONCE DAILY TAKEN BY MOUTH
     Route: 048
     Dates: start: 20130502, end: 20130809
  2. MONTELUKAST SODIUM [Suspect]
     Indication: HYPERSENSITIVITY
     Dosage: 1 PILL ONCE DAILY TAKEN BY MOUTH
     Route: 048
     Dates: start: 20130502, end: 20130809

REACTIONS (5)
  - Anger [None]
  - Irritability [None]
  - Screaming [None]
  - Aggression [None]
  - Dysphemia [None]
